FAERS Safety Report 7407480-8 (Version None)
Quarter: 2011Q2

REPORT INFORMATION
  Report Type: 
  Country: None (occurrence: None)
  Receive Date: 20110412
  Receipt Date: 20110404
  Transmission Date: 20111010
  Serious: Yes (Hospitalization)
  Sender: FDA-Public Use
  Company Number: NO-AMGEN-NORSP2011008560

PATIENT
  Age: 60 Year
  Sex: Female

DRUGS (11)
  1. TRIOBE                             /01079901/ [Concomitant]
     Dosage: 1 TABLET X 1
  2. ALENDRONATE SODIUM [Concomitant]
     Dosage: 70 MG EVERY MONDAY, UNK
  3. CALCIGRAN FORTE [Concomitant]
     Dosage: 1 TABLET X 2
  4. ENBREL [Suspect]
     Indication: RHEUMATOID ARTHRITIS
     Dosage: UNK
     Dates: start: 20061026, end: 20081001
  5. SINEMET [Concomitant]
     Dosage: 25/100 1 TABLET X 2 AND INCREASING 1 X3 AND THEN 1 X 4
  6. METHOTREXATE SODIUM [Concomitant]
     Indication: PSORIATIC ARTHROPATHY
  7. METFORMIN HYDROCHLORIDE [Concomitant]
     Dosage: 500 MG, 3X/DAY
  8. PREDNISOLONE [Concomitant]
     Dosage: 2.5 MG X 1, UNK
  9. ATENOLOL [Concomitant]
     Dosage: 25 MG, 2X/DAY
  10. METHOTREXATE SODIUM [Concomitant]
     Indication: RHEUMATOID ARTHRITIS
     Dosage: 10 MG, WEEKLY
     Dates: start: 19990101
  11. SIMVASTATIN [Concomitant]
     Dosage: 20 MG AT NIGHT, UNK

REACTIONS (2)
  - ENCEPHALOPATHY [None]
  - NERVOUS SYSTEM DISORDER [None]
